FAERS Safety Report 4800984-3 (Version None)
Quarter: 2005Q4

REPORT INFORMATION
  Report Type: 
  Country: None (occurrence: None)
  Receive Date: 20051012
  Receipt Date: 20050929
  Transmission Date: 20060501
  Serious: Yes (Other)
  Sender: FDA-Public Use
  Company Number: 2005138465

PATIENT
  Age: 56 Year
  Sex: Female

DRUGS (3)
  1. ATORVASTATIN CALCIUM [Suspect]
     Indication: HYPERCHOLESTEROLAEMIA
     Dosage: 40 MG (1 IN 1 D)
     Dates: start: 20050101
  2. CLOPIDOGREL BISULFATE [Concomitant]
  3. ACETYLSALICYLATE LYSINE (ACETYLSALICYLATE LYSINE) [Concomitant]

REACTIONS (4)
  - ARTERIAL THERAPEUTIC PROCEDURE [None]
  - EMOTIONAL DISORDER [None]
  - MYALGIA [None]
  - POST PROCEDURAL COMPLICATION [None]
